FAERS Safety Report 7099551-3 (Version None)
Quarter: 2010Q4

REPORT INFORMATION
  Report Type: 
  Country: None (occurrence: None)
  Receive Date: 20101112
  Receipt Date: 20101109
  Transmission Date: 20110411
  Serious: Yes (Other)
  Sender: FDA-Public Use
  Company Number: JP-PFIZER INC-2010144108

PATIENT
  Age: 36 Year
  Sex: Male

DRUGS (7)
  1. ZOLOFT [Suspect]
     Indication: DEPRESSION
     Dosage: 25 MG/DAY
     Dates: start: 20100825
  2. ZOLOFT [Suspect]
     Dosage: 50 MG/DAY
     Dates: start: 20100901
  3. ZOLOFT [Suspect]
     Dosage: 75 MG/DAY
     Route: 048
     Dates: start: 20100930, end: 20101010
  4. ZOLOFT [Suspect]
     Dosage: 25 MG/DAY
  5. WYPAX [Concomitant]
     Dosage: 1.5 MG/DAY
     Route: 048
  6. MYSLEE [Concomitant]
     Indication: INSOMNIA
     Route: 048
  7. ROHYPNOL [Concomitant]
     Indication: INSOMNIA
     Dosage: UNK
     Route: 048

REACTIONS (1)
  - HYPERTHYROIDISM [None]
